FAERS Safety Report 5010414-7 (Version None)
Quarter: 2006Q2

REPORT INFORMATION
  Report Type: 
  Country: None (occurrence: None)
  Receive Date: 20060525
  Receipt Date: 20060511
  Transmission Date: 20061013
  Serious: Yes (Hospitalization)
  Sender: FDA-Public Use
  Company Number: US-JNJFOC-20060504550

PATIENT
  Age: 71 Year
  Sex: Male
  Weight: 85 kg

DRUGS (4)
  1. REOPRO [Suspect]
     Indication: ACUTE MYOCARDIAL INFARCTION
     Route: 042
  2. ENOXAPARIN SODIUM [Concomitant]
     Route: 058
  3. TENECTEPLASE [Concomitant]
     Route: 042
  4. ACETYLSALICYLIC ACID SRT [Concomitant]
     Route: 048

REACTIONS (2)
  - COUGH [None]
  - HAEMOPTYSIS [None]
